FAERS Safety Report 5830314-X (Version None)
Quarter: 2008Q3

REPORT INFORMATION
  Report Type: 
  Country: None (occurrence: None)
  Receive Date: 20080801
  Receipt Date: 20080722
  Transmission Date: 20090109
  Serious: Yes (Life-Threatening, Hospitalization, Other)
  Sender: FDA-Public Use
  Company Number: US-ROCHE-565030

PATIENT
  Sex: Female
  Weight: 68.5 kg

DRUGS (13)
  1. KLONOPIN [Suspect]
     Indication: AGITATION
     Route: 065
  2. LYRICA [Suspect]
     Route: 065
  3. LYRICA [Suspect]
     Dosage: INDICATION: CORONARY ARTERY DISEASE; CHRONIC PAIN; RHEUMATOID ARTHRITIS
     Route: 065
     Dates: start: 20070917
  4. XANAX [Suspect]
     Indication: DRUG USE FOR UNKNOWN INDICATION
     Route: 065
  5. OPANA ER [Suspect]
     Indication: DRUG USE FOR UNKNOWN INDICATION
     Route: 065
  6. ZOLOFT [Suspect]
     Indication: DRUG USE FOR UNKNOWN INDICATION
     Route: 065
  7. PAMELOR [Concomitant]
  8. CELEBREX [Concomitant]
  9. ACETYLSALICYLIC ACID SRT [Concomitant]
  10. METHOTREXATE [Concomitant]
  11. 1 CONCOMITANT DRUG [Concomitant]
     Dosage: DRUG: ALL OTHER THERAPEUTIC PRODUCTS
  12. WELLBUTRIN [Concomitant]
  13. HUMIRA [Concomitant]

REACTIONS (13)
  - AGITATION [None]
  - CORONARY ARTERY DISEASE [None]
  - FEELING ABNORMAL [None]
  - FIBROMYALGIA [None]
  - GASTROENTERITIS VIRAL [None]
  - MUSCLE ATROPHY [None]
  - MYOCARDIAL INFARCTION [None]
  - NAUSEA [None]
  - PAIN [None]
  - RHEUMATOID ARTHRITIS [None]
  - SEROTONIN SYNDROME [None]
  - VOMITING [None]
  - WITHDRAWAL SYNDROME [None]
